FAERS Safety Report 17339598 (Version 1)
Quarter: 2020Q1

REPORT INFORMATION
  Report Type: Spontaneous
  Country: NL (occurrence: NL)
  Receive Date: 20200129
  Receipt Date: 20200129
  Transmission Date: 20200409
  Serious: Yes (Other)
  Sender: FDA-Public Use
  Company Number: NL-ACCORD-171065

PATIENT
  Sex: Female
  Weight: 54 kg

DRUGS (2)
  1. SALOFALK [Concomitant]
  2. GLIMEPIRIDE ACCORD [Suspect]
     Active Substance: GLIMEPIRIDE
     Indication: DIABETES MELLITUS
     Dosage: ORAAL, TABLET 2 MG., 1X PER DAG, 1 TABLET
     Dates: start: 201905

REACTIONS (1)
  - Dementia Alzheimer^s type [Recovering/Resolving]
